FAERS Safety Report 8044890-2 (Version None)
Quarter: 2012Q1

REPORT INFORMATION
  Report Type: 
  Country: None (occurrence: None)
  Receive Date: 20120113
  Receipt Date: 20120111
  Transmission Date: 20120608
  Serious: Yes (Death, Hospitalization)
  Sender: FDA-Public Use
  Company Number: US-ACTELION-A-NJ2011-56279

PATIENT

DRUGS (4)
  1. OXYGEN [Concomitant]
  2. TRACLEER [Suspect]
     Indication: PULMONARY ARTERIAL HYPERTENSION
     Dosage: 125 MG, BID
     Route: 048
     Dates: start: 20090924, end: 20111108
  3. CALCIUM CHANNEL BLOCKERS [Concomitant]
  4. COUMADIN [Concomitant]

REACTIONS (4)
  - INTESTINAL OBSTRUCTION [None]
  - CARDIAC FAILURE CONGESTIVE [None]
  - ORGAN FAILURE [None]
  - DEHYDRATION [None]
